FAERS Safety Report 22371400 (Version 1)
Quarter: 2023Q2

REPORT INFORMATION
  Report Type: Spontaneous
  Country: DE (occurrence: DE)
  Receive Date: 20230526
  Receipt Date: 20230526
  Transmission Date: 20230722
  Serious: Yes (Other)
  Sender: FDA-Public Use
  Company Number: DE-BAXTER-2023BAX021823

PATIENT

DRUGS (18)
  1. BORTEZOMIB [Suspect]
     Active Substance: BORTEZOMIB
     Indication: Plasma cell myeloma refractory
     Dosage: UNK (FIRST LINE INDUCTION CHEMOTHERAPY)
     Route: 065
     Dates: start: 20150401
  2. LENALIDOMIDE [Suspect]
     Active Substance: LENALIDOMIDE
     Indication: Plasma cell myeloma refractory
     Dosage: UNK (THIRD LINE CHEMOTHERAPY)
     Route: 065
     Dates: start: 20180101, end: 20180401
  3. LENALIDOMIDE [Suspect]
     Active Substance: LENALIDOMIDE
     Dosage: UNK (MOST RECENT LINE TREATMENT)
     Route: 065
     Dates: start: 20220901, end: 20230330
  4. MELPHALAN [Suspect]
     Active Substance: MELPHALAN
     Indication: Plasma cell myeloma refractory
     Dosage: UNK (FIRST LINE INDUCTION CHEMOTHERAPY, HIGH DOSE MELPHALAN)
     Route: 065
     Dates: start: 20150401
  5. CARFILZOMIB [Suspect]
     Active Substance: CARFILZOMIB
     Indication: Plasma cell myeloma refractory
     Dosage: UNK (SECOND LINE INDUCTION CHEMOTHERAPY)
     Route: 065
     Dates: start: 20160915
  6. DOXORUBICIN HYDROCHLORIDE [Suspect]
     Active Substance: DOXORUBICIN HYDROCHLORIDE
     Indication: Plasma cell myeloma refractory
     Dosage: UNK (OTHER TREATMENT REGIMEN)
     Route: 065
  7. CYCLOPHOSPHAMIDE [Suspect]
     Active Substance: CYCLOPHOSPHAMIDE
     Indication: Plasma cell myeloma refractory
     Dosage: UNK (FIRST LINE INDUCTION CHEMOTHERAPY)
     Route: 065
     Dates: start: 20150401, end: 20160901
  8. CYCLOPHOSPHAMIDE [Suspect]
     Active Substance: CYCLOPHOSPHAMIDE
     Dosage: UNK (FIFTH LINE CHEMOTHERAPY)
     Route: 065
     Dates: start: 20200601, end: 20201201
  9. DARATUMUMAB [Suspect]
     Active Substance: DARATUMUMAB
     Indication: Plasma cell myeloma refractory
     Dosage: UNK (FOURTH LINE CHEMOTHERAPY)
     Route: 065
     Dates: start: 20180415
  10. DEXAMETHASONE [Suspect]
     Active Substance: DEXAMETHASONE
     Indication: Plasma cell myeloma refractory
     Dosage: UNK (SECOND LINE CHEMOTHERAPY)
     Route: 065
     Dates: start: 20160915, end: 20170201
  11. DEXAMETHASONE [Suspect]
     Active Substance: DEXAMETHASONE
     Dosage: UNK (FOURTH LINE CHEMOTHERAPY)
     Route: 065
     Dates: start: 20180415, end: 20200501
  12. DEXAMETHASONE [Suspect]
     Active Substance: DEXAMETHASONE
     Dosage: UNK (FIRST LINE INDUCTION CHEMOTHERAPY)
     Route: 065
     Dates: start: 20150401, end: 20160901
  13. DEXAMETHASONE [Suspect]
     Active Substance: DEXAMETHASONE
     Dosage: UNK (MOST RECENT LINE TREATMENT)
     Route: 065
     Dates: start: 20220901, end: 20230330
  14. DEXAMETHASONE [Suspect]
     Active Substance: DEXAMETHASONE
     Dosage: UNK (FIFTH LINE CHEMOTHERAPY)
     Route: 065
     Dates: start: 20200601, end: 20201201
  15. DEXAMETHASONE [Suspect]
     Active Substance: DEXAMETHASONE
     Dosage: UNK (THIRD LINE CHEMOTHERAPY)
     Dates: start: 20180101, end: 20180401
  16. ELOTUZUMAB [Suspect]
     Active Substance: ELOTUZUMAB
     Indication: Plasma cell myeloma refractory
     Dosage: UNK (MOST RECENT LINE OF TREATMENT)
     Route: 065
     Dates: start: 20220901
  17. PANOBINOSTAT [Suspect]
     Active Substance: PANOBINOSTAT
     Indication: Plasma cell myeloma refractory
     Dosage: UNK (SIXTH LINE CHEMOTHERAPY)
     Route: 065
     Dates: start: 20201210
  18. POMALIDOMIDE [Suspect]
     Active Substance: POMALIDOMIDE
     Indication: Plasma cell myeloma refractory
     Dosage: UNK (FIFTH LINE CHEMOTHERAPY)
     Route: 065
     Dates: start: 20200601

REACTIONS (1)
  - Plasma cell myeloma [Unknown]
